FAERS Safety Report 8029711-6 (Version None)
Quarter: 2012Q1

REPORT INFORMATION
  Report Type: 
  Country: None (occurrence: None)
  Receive Date: 20120104
  Receipt Date: 20111222
  Transmission Date: 20120608
  Serious: Yes (Death)
  Sender: FDA-Public Use
  Company Number: DSA_48638_2011

PATIENT
  Age: 73 Year
  Sex: Male

DRUGS (1)
  1. DILTIAZEM [Suspect]
     Dosage: (DF ORAL)
     Route: 048

REACTIONS (2)
  - TOXICITY TO VARIOUS AGENTS [None]
  - ACCIDENTAL EXPOSURE [None]
